FAERS Safety Report 14135170 (Version 3)
Quarter: 2017Q4

REPORT INFORMATION
  Report Type: Spontaneous
  Country: US (occurrence: US)
  Receive Date: 20171027
  Receipt Date: 20171109
  Transmission Date: 20180321
  Serious: No
  Sender: FDA-Public Use
  Company Number: US-PFIZER INC-2017462441

PATIENT
  Age: 75 Year
  Sex: Female

DRUGS (14)
  1. TORSEMIDE. [Concomitant]
     Active Substance: TORSEMIDE
     Indication: PERIPHERAL SWELLING
     Dosage: 20 MG, 1X/DAY
     Route: 048
     Dates: start: 2012
  2. VITAMIN D3 [Concomitant]
     Active Substance: CHOLECALCIFEROL
     Dosage: 1000 IU, 1X/DAY
     Route: 048
     Dates: start: 2012
  3. CLONIDINE. [Concomitant]
     Active Substance: CLONIDINE
     Indication: BLOOD PRESSURE ABNORMAL
     Dosage: .1 MG, 1X/DAY
     Route: 048
     Dates: start: 2015
  4. FISH OIL [Concomitant]
     Active Substance: FISH OIL
     Indication: CARDIAC DISORDER
     Dosage: 1000 MG, 1X/DAY
     Route: 048
     Dates: start: 2015
  5. HYDROCODONE [Concomitant]
     Active Substance: HYDROCODONE
     Dosage: 7.5 MG, 4X/DAY
     Route: 048
     Dates: start: 2012, end: 20170922
  6. HYDROCODONE [Concomitant]
     Active Substance: HYDROCODONE
     Dosage: 2 MG, UNK
  7. LATANOPROST. [Concomitant]
     Active Substance: LATANOPROST
     Indication: GLAUCOMA
     Dosage: 1 DF, DAILY, 0.005% ONE DROP IN EACH EYE DAILY IN THE LATE EVENING
     Route: 047
     Dates: start: 2012
  8. ASPIRIN. [Concomitant]
     Active Substance: ASPIRIN
     Dosage: 81 MG, 1X/DAY
     Route: 048
     Dates: start: 2012
  9. HYDROCODONE [Concomitant]
     Active Substance: HYDROCODONE
     Indication: PAIN
     Dosage: 5 MG, UNK
  10. PRILOSEC [Concomitant]
     Active Substance: OMEPRAZOLE MAGNESIUM
     Dosage: 10 MG, 1X/DAY, AFTER EVENING MEAL
     Route: 048
     Dates: start: 2012
  11. SENNADOCUSATE [Concomitant]
     Indication: CONSTIPATION
     Dosage: 8.6/50MG TAKING 2 PER DAY BY MOUTH
     Route: 048
     Dates: start: 2012
  12. TYLENOL [Concomitant]
     Active Substance: ACETAMINOPHEN
     Indication: PAIN
     Dosage: 325 MG, TAKES 1-2 BY MOUTH AS NEEDED
     Route: 048
     Dates: start: 201708
  13. XELJANZ [Suspect]
     Active Substance: TOFACITINIB CITRATE
     Indication: RHEUMATOID ARTHRITIS
     Dosage: 5 MG, 2X/DAY
     Route: 048
     Dates: start: 20160816
  14. POTASSIUM CHLORIDE. [Concomitant]
     Active Substance: POTASSIUM CHLORIDE
     Dosage: 10 MEQ, 1X/DAY
     Route: 048
     Dates: start: 2012

REACTIONS (5)
  - Weight increased [Not Recovered/Not Resolved]
  - Peripheral swelling [Unknown]
  - Myalgia [Unknown]
  - Condition aggravated [Unknown]
  - Musculoskeletal stiffness [Unknown]

NARRATIVE: CASE EVENT DATE: 2016
